FAERS Safety Report 20291694 (Version 2)
Quarter: 2022Q1

REPORT INFORMATION
  Report Type: Report from Study
  Country: CA (occurrence: CA)
  Receive Date: 20220104
  Receipt Date: 20220110
  Transmission Date: 20220423
  Serious: Yes (Hospitalization, Other)
  Sender: FDA-Public Use
  Company Number: CA-BRISTOL-MYERS SQUIBB COMPANY-BMS-2021-143479

PATIENT
  Age: 54 Year
  Sex: Male
  Weight: 61.6 kg

DRUGS (16)
  1. NIVOLUMAB [Suspect]
     Active Substance: NIVOLUMAB
     Indication: Renal cancer metastatic
     Dosage: UNK
     Route: 065
     Dates: start: 20211018
  2. IPILIMUMAB [Suspect]
     Active Substance: IPILIMUMAB
     Indication: Renal cancer metastatic
     Dosage: UNK
     Route: 065
     Dates: start: 20211018
  3. COVID-19 VACCINE [Concomitant]
     Indication: Prophylaxis
     Dosage: UNK, QD
     Route: 030
     Dates: start: 20210513, end: 20210513
  4. COVID-19 VACCINE [Concomitant]
     Dosage: UNK, QD SECOND DOSE
     Route: 030
     Dates: start: 20210708, end: 20210708
  5. VITAMIN C [Concomitant]
     Active Substance: ASCORBIC ACID
     Indication: Prophylaxis
     Dosage: 1000 UNIT, QD FROM OCT 2021 TO 05-OCT-2021
     Route: 048
  6. CHOLECALCIFEROL [Concomitant]
     Active Substance: CHOLECALCIFEROL
     Indication: Prophylaxis
     Dosage: 5000 UNIT, QD FROM OCT 2021 TO 05-OCT-2021
     Route: 048
  7. ONDANSETRON [Concomitant]
     Active Substance: ONDANSETRON
     Indication: Prophylaxis
     Dosage: 8 MILLIGRAM, PRN
     Route: 048
     Dates: start: 20211027
  8. ACETAMINOPHEN [Concomitant]
     Active Substance: ACETAMINOPHEN
     Indication: Prophylaxis
     Dosage: 650 MILLIGRAM, QD
     Route: 048
     Dates: start: 20211018, end: 20211018
  9. ACETAMINOPHEN [Concomitant]
     Active Substance: ACETAMINOPHEN
     Dosage: 650 MILLIGRAM, QD
     Route: 048
     Dates: start: 20211117, end: 20211117
  10. ACETAMINOPHEN [Concomitant]
     Active Substance: ACETAMINOPHEN
     Dosage: 650 MILLIGRAM, QD
     Route: 048
     Dates: start: 20211208, end: 20211208
  11. TYLENOL [Concomitant]
     Active Substance: ACETAMINOPHEN
     Indication: Renal pain
     Dosage: 1 TO 2 TAB PRN
     Route: 048
     Dates: start: 202111, end: 20211206
  12. BIFIDOBACTERIUM ANIMALIS LACTIS [Concomitant]
     Active Substance: BIFIDOBACTERIUM ANIMALIS LACTIS
     Indication: Prophylaxis
     Dosage: 1 TAB, QD
     Route: 048
     Dates: start: 20211105
  13. VITAMIN B12 [Concomitant]
     Active Substance: CYANOCOBALAMIN
     Indication: Prophylaxis
     Dosage: 1 TAB, QD
     Route: 048
     Dates: start: 20211105
  14. SENOKOT [Concomitant]
     Active Substance: SENNOSIDES
     Indication: Constipation
     Dosage: 2 TO 4 TAB DAILY AT NIGHT
     Route: 048
     Dates: start: 20211116
  15. BENADRYL [Concomitant]
     Active Substance: DIPHENHYDRAMINE HYDROCHLORIDE
     Indication: Prophylaxis
     Dosage: QD
     Route: 042
     Dates: start: 20211208, end: 20211208
  16. TYLENOL WITH CODEINE [Concomitant]
     Active Substance: ACETAMINOPHEN\CODEINE PHOSPHATE
     Indication: Pain
     Dosage: UNK, PRN
     Route: 048
     Dates: start: 20211206

REACTIONS (1)
  - Embolism [Recovered/Resolved]

NARRATIVE: CASE EVENT DATE: 20211223
